FAERS Safety Report 8183749-7 (Version None)
Quarter: 2012Q1

REPORT INFORMATION
  Report Type: 
  Country: None (occurrence: None)
  Receive Date: 20120305
  Receipt Date: 20120301
  Transmission Date: 20120608
  Serious: Yes (Death, Hospitalization)
  Sender: FDA-Public Use
  Company Number: PHEH2011US05535

PATIENT
  Sex: Female

DRUGS (1)
  1. GLEEVEC [Suspect]
     Indication: CHRONIC MYELOID LEUKAEMIA
     Dosage: 400 MG, DAILY
     Route: 048
     Dates: start: 20110907, end: 20110920

REACTIONS (8)
  - FULL BLOOD COUNT INCREASED [None]
  - DECREASED APPETITE [None]
  - OEDEMA [None]
  - DEATH [None]
  - OEDEMA PERIPHERAL [None]
  - FATIGUE [None]
  - DYSPNOEA [None]
  - PALPITATIONS [None]
